FAERS Safety Report 7138184-7 (Version None)
Quarter: 2010Q4

REPORT INFORMATION
  Report Type: 
  Country: None (occurrence: None)
  Receive Date: 20101118
  Receipt Date: 20101101
  Transmission Date: 20110411
  Serious: Yes (Death, Hospitalization)
  Sender: FDA-Public Use
  Company Number: GER/USA/10/0016548

PATIENT
  Age: 46 Year
  Sex: Female

DRUGS (11)
  1. IRINOTECAN HCL [Suspect]
     Indication: METASTATIC NEOPLASM
  2. CIPROFLOXACIN [Suspect]
     Indication: PRODUCT USED FOR UNKNOWN INDICATION
  3. CETUXIMAB (CETUXIMAB) [Suspect]
     Indication: METASTATIC NEOPLASM
  4. FLUOROURACIL [Suspect]
     Indication: METASTATIC NEOPLASM
  5. GEMCITABINE [Suspect]
     Indication: METASTATIC NEOPLASM
  6. LEUCOVORIN CALCIUM [Suspect]
     Indication: METASTATIC NEOPLASM
  7. GRANULOCYTE COLONY-STIMULATING FACTOR (GRANULOCYTE-COLONY STIMULATING [Suspect]
     Indication: METASTATIC NEOPLASM
  8. INTERLEUKIN-2 (INTERLEUKIN-2) [Suspect]
     Indication: METASTATIC NEOPLASM
  9. METRONIDAZOLE [Suspect]
     Indication: PRODUCT USED FOR UNKNOWN INDICATION
  10. VANCOMYCIN [Suspect]
     Indication: DIARRHOEA
  11. BACID (LACTOBACILLUS ACIDOPHILUS) [Suspect]
     Indication: DIARRHOEA

REACTIONS (11)
  - ABDOMINAL PAIN [None]
  - BACTERAEMIA [None]
  - CLOSTRIDIUM DIFFICILE COLITIS [None]
  - DEEP VEIN THROMBOSIS [None]
  - DIARRHOEA [None]
  - LACTOBACILLUS INFECTION [None]
  - NAUSEA [None]
  - NEUTROPENIA [None]
  - PYREXIA [None]
  - STAPHYLOCOCCAL INFECTION [None]
  - VOMITING [None]
